FAERS Safety Report 9528481 (Version 1)
Quarter: 2013Q3

REPORT INFORMATION
  Report Type: Spontaneous
  Country: FI (occurrence: FI)
  Receive Date: 20130917
  Receipt Date: 20130917
  Transmission Date: 20140515
  Serious: Yes (Other)
  Sender: FDA-Public Use
  Company Number: FI-JNJFOC-20130904442

PATIENT
  Sex: Female

DRUGS (2)
  1. SIMPONI [Suspect]
     Indication: SAPHO SYNDROME
     Dosage: SIMPONI FOR ABOUT ONE AND A HALF YEARS
     Route: 058
     Dates: start: 2012
  2. BURANA [Concomitant]
     Indication: SAPHO SYNDROME
     Route: 065

REACTIONS (2)
  - Femoral hernia [Unknown]
  - Drug ineffective for unapproved indication [Unknown]
